FAERS Safety Report 6906633-2 (Version None)
Quarter: 2010Q3

REPORT INFORMATION
  Report Type: 
  Country: None (occurrence: None)
  Receive Date: 20100804
  Receipt Date: 20100721
  Transmission Date: 20110219
  Serious: Yes (Hospitalization, Other)
  Sender: FDA-Public Use
  Company Number: GB-GENENTECH-300067

PATIENT
  Age: 38 Year
  Sex: Female

DRUGS (7)
  1. XOLAIR [Suspect]
     Indication: ASTHMA
  2. PREDNISOLONE [Concomitant]
     Indication: PRODUCT USED FOR UNKNOWN INDICATION
  3. TERBUTALINE SULFATE [Concomitant]
     Indication: PRODUCT USED FOR UNKNOWN INDICATION
  4. METHOTREXATE [Concomitant]
     Indication: PRODUCT USED FOR UNKNOWN INDICATION
  5. DOXYCYCLINE [Concomitant]
     Indication: PRODUCT USED FOR UNKNOWN INDICATION
  6. FEXOFENADINE [Concomitant]
     Indication: PRODUCT USED FOR UNKNOWN INDICATION
  7. THEOPHYLLINE [Concomitant]
     Indication: PRODUCT USED FOR UNKNOWN INDICATION

REACTIONS (10)
  - ANAPHYLACTIC REACTION [None]
  - ANTINEUTROPHIL CYTOPLASMIC ANTIBODY [None]
  - ARTHRALGIA [None]
  - BRONCHIAL WALL THICKENING [None]
  - CUSHINGOID [None]
  - DEPRESSION [None]
  - DYSPNOEA EXERTIONAL [None]
  - HYPERTENSION [None]
  - HYPOXIA [None]
  - NEUTROPHILIA [None]
